FAERS Safety Report 9806598 (Version 4)
Quarter: 2014Q2

REPORT INFORMATION
  Report Type: Spontaneous
  Country: JP (occurrence: JP)
  Receive Date: 20140109
  Receipt Date: 20140422
  Transmission Date: 20141212
  Serious: Yes (Life-Threatening, Hospitalization)
  Sender: FDA-Public Use
  Company Number: JP-B.I. PHARMACEUTICALS,INC./RIDGEFIELD-2014-BI-01008NB

PATIENT
  Age: 59 Year
  Sex: Female
  Weight: 40 kg

DRUGS (9)
  1. TRAZENTA [Suspect]
     Indication: DIABETES MELLITUS
     Dosage: 5 MG
     Route: 048
     Dates: start: 201307, end: 20140103
  2. CLARITHROMYCIN / CLARITHROMYCIN [Concomitant]
     Route: 065
  3. EBUTOL / ETHAMBUTOL HYDROCHLORIDE [Concomitant]
     Route: 065
  4. GRACEVIT / SITAFLOXACIN HYDRATE [Concomitant]
     Route: 065
  5. MEDICON / DEXTROMETHORPHAN HYDROBROMIDE HYDRATE [Concomitant]
     Route: 065
  6. FAROM / FAROPENEM SODIUM HYDRATE [Concomitant]
     Route: 065
  7. CEREKINON / TRIMEBUTINE MALEATE [Concomitant]
     Route: 065
  8. MIYA BM / CLOSTRIDIUM BUTYRICUM [Concomitant]
     Route: 065
  9. FAMOTIDINE D / FAMOTIDINE [Concomitant]
     Route: 065

REACTIONS (2)
  - Interstitial lung disease [Not Recovered/Not Resolved]
  - Dyspnoea [Unknown]
